FAERS Safety Report 21273678 (Version 1)
Quarter: 2022Q3

REPORT INFORMATION
  Report Type: Spontaneous
  Country: US (occurrence: None)
  Receive Date: 20220830
  Receipt Date: 20220830
  Transmission Date: 20221026
  Serious: Yes (Other)
  Sender: FDA-Public Use
  Company Number: None

PATIENT
  Sex: Male

DRUGS (20)
  1. STELARA [Suspect]
     Active Substance: USTEKINUMAB
  2. ATORVASTATIN [Concomitant]
     Active Substance: ATORVASTATIN
  3. BUDESONIDE CAP [Concomitant]
  4. CALTRATE WITH VITAMIN D [Concomitant]
     Active Substance: CALCIUM CARBONATE\CHOLECALCIFEROL
  5. CINNAMON CAP [Concomitant]
  6. FISH OIL [Concomitant]
     Active Substance: FISH OIL
  7. FOLIC ACID TAB [Concomitant]
  8. INFLECTRA [Concomitant]
     Active Substance: INFLIXIMAB-DYYB
  9. IRON TAB [Concomitant]
  10. LINZESS CAP [Concomitant]
  11. METOPROL SUC TAB [Concomitant]
  12. MIRALAX POW [Concomitant]
  13. MULTIVITAMIN TAB MEN 50+ [Concomitant]
  14. OMEPAZOLE CAP [Concomitant]
  15. TRIAMCINOLON CRE [Concomitant]
  16. VITAMIN B-12 TAB [Concomitant]
  17. VITAMIN C CHW [Concomitant]
  18. VITAMIN E CAP [Concomitant]
  19. ZINC LOZ [Concomitant]
  20. ZINC [Concomitant]
     Active Substance: ZINC

REACTIONS (2)
  - Product dose omission issue [None]
  - Intestinal resection [None]
